FAERS Safety Report 24228580 (Version 1)
Quarter: 2024Q3

REPORT INFORMATION
  Report Type: Spontaneous
  Country: CA (occurrence: CA)
  Receive Date: 20240820
  Receipt Date: 20240820
  Transmission Date: 20241017
  Serious: Yes (Other)
  Sender: ACCORD
  Company Number: None

PATIENT

DRUGS (6)
  1. HYDROXYCHLOROQUINE [Suspect]
     Active Substance: HYDROXYCHLOROQUINE
     Indication: Product used for unknown indication
     Route: 065
  2. BACTRIM [Concomitant]
     Active Substance: SULFAMETHOXAZOLE\TRIMETHOPRIM
     Dosage: 1 EVERY 2 DAYS
     Route: 065
  3. FOLIC ACID [Concomitant]
     Active Substance: FOLIC ACID
     Dosage: 1 EVERY 1 WEEKS
     Route: 065
  4. METHOTREXATE [Concomitant]
     Active Substance: METHOTREXATE
     Dosage: 1 EVERY 1 WEEKS
     Route: 065
  5. PREDNISONE [Concomitant]
     Active Substance: PREDNISONE
     Dosage: 1 EVERY 1 DAYS
  6. METHOTREXATE [Concomitant]
     Active Substance: METHOTREXATE
     Route: 065

REACTIONS (19)
  - Chronic fatigue syndrome [Unknown]
  - Bone density decreased [Unknown]
  - Epistaxis [Unknown]
  - Gingival disorder [Unknown]
  - Gastrooesophageal reflux disease [Unknown]
  - Vomiting [Unknown]
  - Swollen tongue [Unknown]
  - Dry eye [Unknown]
  - Lung disorder [Unknown]
  - Non-alcoholic fatty liver [Unknown]
  - Fibromyalgia [Unknown]
  - Neuropathy peripheral [Unknown]
  - Anxiety [Unknown]
  - Teeth brittle [Unknown]
  - Cholangitis sclerosing [Unknown]
  - Nausea [Unknown]
  - Osteoarthritis [Unknown]
  - Depression [Unknown]
  - Dry mouth [Unknown]
